FAERS Safety Report 17214378 (Version 1)
Quarter: 2019Q4

REPORT INFORMATION
  Report Type: Spontaneous
  Country: US (occurrence: US)
  Receive Date: 20191206
  Receipt Date: 20191206
  Transmission Date: 20200122
  Serious: Yes (Disabling, Other)
  Sender: FDA-Public Use
  Company Number: None

PATIENT
  Age: 58 Year
  Sex: Female
  Weight: 68.04 kg

DRUGS (4)
  1. FLONASE [Concomitant]
     Active Substance: FLUTICASONE PROPIONATE
  2. ANTIBIOTIC [Concomitant]
     Active Substance: UNSPECIFIED INGREDIENT
  3. ROBAFEN [Concomitant]
     Active Substance: DEXTROMETHORPHAN HYDROBROMIDE\GUAIFENESIN
  4. DRAMAMINE [Suspect]
     Active Substance: DIMENHYDRINATE
     Indication: PROPHYLAXIS AGAINST MOTION SICKNESS
     Dosage: OTHER DOSE: ONCE PER FLIGHT(11)
     Route: 048
     Dates: start: 201701, end: 201808

REACTIONS (5)
  - Swelling face [None]
  - Erythema [None]
  - Deafness [None]
  - Dysarthria [None]
  - Tinnitus [None]

NARRATIVE: CASE EVENT DATE: 2018
